FAERS Safety Report 7320610-1 (Version None)
Quarter: 2011Q1

REPORT INFORMATION
  Report Type: 
  Country: None (occurrence: None)
  Receive Date: 20110228
  Receipt Date: 20110216
  Transmission Date: 20110831
  Serious: Yes (Hospitalization, Other)
  Sender: FDA-Public Use
  Company Number: US-ROCHE-702774

PATIENT
  Sex: Male
  Weight: 68 kg

DRUGS (2)
  1. AMPICILLIN [Concomitant]
  2. ACCUTANE [Suspect]
     Indication: ACNE
     Dosage: 40 MG ON ODD DAYS AND 80 MG ON EVEN NO. DAYS
     Route: 065
     Dates: start: 19950519, end: 19951010

REACTIONS (6)
  - STRESS [None]
  - HAEMORRHOIDS [None]
  - CROHN'S DISEASE [None]
  - BLOOD TRIGLYCERIDES INCREASED [None]
  - INFLAMMATORY BOWEL DISEASE [None]
  - IRON DEFICIENCY ANAEMIA [None]
